FAERS Safety Report 8012612-7 (Version None)
Quarter: 2011Q4

REPORT INFORMATION
  Report Type: 
  Country: None (occurrence: None)
  Receive Date: 20111229
  Receipt Date: 20111219
  Transmission Date: 20120403
  Serious: Yes (Hospitalization, Other)
  Sender: FDA-Public Use
  Company Number: US-BAYER-2011-036935

PATIENT
  Age: 42 Year
  Sex: Female
  Weight: 86.168 kg

DRUGS (8)
  1. PROTONIX [Concomitant]
  2. YASMIN [Suspect]
     Indication: CONTRACEPTION
     Dosage: UNK
     Dates: start: 20060201, end: 20060901
  3. NSAID'S [Concomitant]
     Dosage: UNK UNK, PRN
     Dates: end: 20060901
  4. LEVAQUIN [Concomitant]
     Dosage: 600 MG, UNK
     Route: 048
  5. ATENOLOL [Concomitant]
  6. METROPOLOL [Concomitant]
     Dosage: 25 MG, UNK
     Route: 048
  7. ZOVIRAX [Concomitant]
  8. PREVACID [Concomitant]
     Dosage: 30 MG, UNK
     Route: 048

REACTIONS (8)
  - PAIN [None]
  - CHOLECYSTITIS CHRONIC [None]
  - INJURY [None]
  - DEEP VEIN THROMBOSIS [None]
  - GALLBLADDER DISORDER [None]
  - ANXIETY [None]
  - PULMONARY EMBOLISM [None]
  - EMOTIONAL DISTRESS [None]
